FAERS Safety Report 4902729-5 (Version None)
Quarter: 2006Q1

REPORT INFORMATION
  Report Type: 
  Country: None (occurrence: None)
  Receive Date: 20060207
  Receipt Date: 20060124
  Transmission Date: 20060701
  Serious: Yes (Hospitalization)
  Sender: FDA-Public Use
  Company Number: JP-BOEHRINGER INGELHEIM PHARMACEUTICALS, INC.-2006-BP-01279YA

PATIENT
  Sex: Male

DRUGS (9)
  1. HARNAL [Suspect]
     Route: 048
     Dates: start: 20060106, end: 20060124
  2. FUROSEMIDE [Concomitant]
     Route: 048
  3. ITRACONAZOLE [Concomitant]
     Route: 048
  4. SPIRONOLACTONE [Concomitant]
     Route: 048
  5. CARBOCISTEINE [Concomitant]
     Route: 048
  6. DIMETICONE [Concomitant]
     Route: 048
  7. THEOPHYLLINE [Concomitant]
     Route: 048
  8. MOSAPRIDE CITRATE [Concomitant]
     Route: 048
  9. LANSOPRAZOLE [Concomitant]
     Route: 048

REACTIONS (1)
  - ANAEMIA [None]
